FAERS Safety Report 4307229-1 (Version None)
Quarter: 2004Q1

REPORT INFORMATION
  Report Type: 
  Country: None (occurrence: None)
  Receive Date: 20040223
  Receipt Date: 20030310
  Transmission Date: 20041129
  Serious: Yes (Hospitalization)
  Sender: FDA-Public Use
  Company Number: US 2003 0001

PATIENT
  Age: 79 Year
  Sex: Female

DRUGS (2)
  1. OXILAN-350 [Suspect]
     Indication: ARTERIOGRAM CORONARY
     Dosage: 15 ML, 1 X, IV
     Route: 042
     Dates: start: 20030129
  2. DIPHENHYDRAMINE HCL [Concomitant]

REACTIONS (3)
  - ANAPHYLACTIC SHOCK [None]
  - HYPOTENSION [None]
  - TACHYCARDIA [None]
